FAERS Safety Report 11705962 (Version 2)
Quarter: 2015Q4

REPORT INFORMATION
  Report Type: Spontaneous
  Country: US (occurrence: US)
  Receive Date: 20151106
  Receipt Date: 20151125
  Transmission Date: 20160304
  Serious: Yes (Hospitalization)
  Sender: FDA-Public Use
  Company Number: US-UNITED THERAPEUTICS-UNT-2015-013011

PATIENT
  Age: 56 Year
  Sex: Female
  Weight: 83.9 kg

DRUGS (3)
  1. SILDENAFIL. [Concomitant]
     Active Substance: SILDENAFIL
     Indication: PRODUCT USED FOR UNKNOWN INDICATION
  2. REMODULIN [Suspect]
     Active Substance: TREPROSTINIL
     Indication: PULMONARY ARTERIAL HYPERTENSION
     Dosage: 0.0539 ?G/KG, CONTINUING
     Route: 058
     Dates: start: 20140925
  3. REMODULIN [Suspect]
     Active Substance: TREPROSTINIL
     Dosage: 0.0539 ?G/KG, CONTINUING
     Route: 058

REACTIONS (7)
  - Infusion site erythema [Unknown]
  - Blood pressure decreased [Unknown]
  - Malaise [Unknown]
  - Infusion site pain [Unknown]
  - Dizziness [Unknown]
  - Infusion site infection [Unknown]
  - Syncope [Unknown]

NARRATIVE: CASE EVENT DATE: 201510
